FAERS Safety Report 7454998-8 (Version None)
Quarter: 2011Q2

REPORT INFORMATION
  Report Type: 
  Country: None (occurrence: None)
  Receive Date: 20110503
  Receipt Date: 20110427
  Transmission Date: 20111010
  Serious: Yes (Hospitalization)
  Sender: FDA-Public Use
  Company Number: US-SHIRE-SPV1-2011-00522

PATIENT
  Sex: Male
  Weight: 15.9 kg

DRUGS (4)
  1. INTUNIV [Suspect]
     Dosage: 1 MG, 1X/DAY:QD
     Route: 048
     Dates: start: 20100331, end: 20100608
  2. CLONIDINE [Suspect]
     Indication: HYPERTENSION
  3. INTUNIV [Suspect]
     Indication: ATTENTION DEFICIT/HYPERACTIVITY DISORDER
     Dosage: 3 MG, 1X/DAY:QD
     Dates: start: 20101116, end: 20110309
  4. INTUNIV [Suspect]
     Dosage: 2 MG, 1X/DAY:QD
     Dates: start: 20100608, end: 20101116

REACTIONS (4)
  - BLOOD PRESSURE INCREASED [None]
  - PANCREATITIS [None]
  - CONVULSION [None]
  - OFF LABEL USE [None]
